FAERS Safety Report 9347600 (Version 3)
Quarter: 2014Q2

REPORT INFORMATION
  Report Type: Spontaneous
  Country: US (occurrence: US)
  Receive Date: 20130614
  Receipt Date: 20140407
  Transmission Date: 20141212
  Serious: No
  Sender: FDA-Public Use
  Company Number: US-BIOGENIDEC-2013BI050834

PATIENT
  Sex: Female

DRUGS (3)
  1. AVONEX [Suspect]
     Indication: MULTIPLE SCLEROSIS
     Route: 030
     Dates: start: 20121001
  2. AVONEX [Suspect]
     Indication: MULTIPLE SCLEROSIS
     Route: 030
     Dates: start: 20121024
  3. AVONEX [Suspect]
     Indication: MULTIPLE SCLEROSIS
     Route: 030
     Dates: start: 20130728

REACTIONS (6)
  - Furuncle [Recovered/Resolved]
  - Dry mouth [Recovered/Resolved with Sequelae]
  - Contusion [Recovered/Resolved]
  - Nasopharyngitis [Unknown]
  - Influenza [Unknown]
  - Influenza like illness [Recovered/Resolved with Sequelae]
